FAERS Safety Report 6809162 (Version 18)
Quarter: 2013Q3

REPORT INFORMATION
  Report Type: Spontaneous
  Country: US (occurrence: US)
  Receive Date: 20081112
  Receipt Date: 20130816
  Transmission Date: 20140515
  Serious: Yes (Death, Other)
  Sender: FDA-Public Use
  Company Number: PHEH2008US09977

PATIENT
  Age: 68 Year
  Sex: Male

DRUGS (30)
  1. ZOMETA [Suspect]
     Dosage: 4 MG, QW3
     Dates: end: 20080305
  2. VIADUR [Concomitant]
     Dates: start: 20050516
  3. FLONASE [Concomitant]
  4. LIPITOR [Concomitant]
  5. ZETIA [Concomitant]
  6. PREDNISONE [Concomitant]
  7. CALCIUM [Concomitant]
     Dosage: 500 MG, QD
  8. VITAMIN D [Concomitant]
  9. MULTIVITAMIN ^LAPPE^ [Concomitant]
  10. CHEMOTHERAPEUTICS NOS [Concomitant]
  11. HORMONES NOS [Concomitant]
  12. TAXOTERE [Concomitant]
     Dosage: 75 MG/KG,
     Dates: start: 200706
  13. DASATINIB [Concomitant]
     Dosage: 100 MG, QD
  14. LIDOCAINE W/EPINEPHRINE ^EGYT^ [Concomitant]
  15. OXYGEN THERAPY [Concomitant]
  16. RADIATION THERAPY [Concomitant]
     Dosage: 2 GY, QD FOR 6 FRACTIONS
     Dates: start: 20090616, end: 20090624
  17. ZOLADEX [Concomitant]
     Dates: start: 19970904, end: 19990104
  18. KETOCONAZOLE [Concomitant]
  19. DEXAMETHASONE [Concomitant]
  20. CASODEX [Concomitant]
     Dates: start: 20050826, end: 20060515
  21. DRUG THERAPY NOS [Concomitant]
  22. AVODART [Concomitant]
     Dates: start: 20050121, end: 20061025
  23. CELEBREX [Concomitant]
  24. OXYCODONE [Concomitant]
  25. LEVAQUIN [Concomitant]
  26. ZYRTEC [Concomitant]
  27. GLUCOSAMINE /CHONDROITIN /MSM [Concomitant]
  28. DEPO PROVERA [Concomitant]
  29. FISH OIL [Concomitant]
  30. COQ10 [Concomitant]

REACTIONS (63)
  - Death [Fatal]
  - Metastases to bone [Unknown]
  - Atelectasis [Unknown]
  - Peripheral artery stenosis [Unknown]
  - Osteonecrosis of jaw [Unknown]
  - General physical health deterioration [Unknown]
  - Pain [Unknown]
  - Anxiety [Unknown]
  - Periodontitis [Unknown]
  - Decreased interest [Unknown]
  - Gingival recession [Unknown]
  - Bone loss [Unknown]
  - Dental caries [Unknown]
  - Oral pain [Unknown]
  - Diverticulum [Unknown]
  - Spinal osteoarthritis [Unknown]
  - Myalgia [Unknown]
  - Arthralgia [Unknown]
  - Renal mass [Unknown]
  - Swelling [Unknown]
  - Pulmonary fibrosis [Unknown]
  - Pleural effusion [Unknown]
  - Retroperitoneal lymphadenopathy [Unknown]
  - Renal failure chronic [Unknown]
  - Acute prerenal failure [Unknown]
  - Renal failure acute [Unknown]
  - Abnormal loss of weight [Unknown]
  - Bone pain [Unknown]
  - Prostate cancer [Unknown]
  - Prostate cancer metastatic [Unknown]
  - Hydronephrosis [Unknown]
  - Abdominal mass [Unknown]
  - Cataract [Unknown]
  - Bone disorder [Unknown]
  - Osteomyelitis [Unknown]
  - Stomatitis [Recovering/Resolving]
  - Osteoporosis [Unknown]
  - Chronic sinusitis [Unknown]
  - Pain in extremity [Unknown]
  - Prostatic specific antigen increased [Recovering/Resolving]
  - Ankle brachial index decreased [Unknown]
  - Eyelid infection [Unknown]
  - Red blood cell count decreased [Unknown]
  - Haemoglobin decreased [Unknown]
  - Haematocrit decreased [Unknown]
  - White blood cell count decreased [Unknown]
  - Neutrophil count decreased [Unknown]
  - Lymphocyte count decreased [Unknown]
  - Blood glucose increased [Unknown]
  - Blood urea increased [Unknown]
  - Blood testosterone decreased [Unknown]
  - Monocyte count increased [Unknown]
  - Astigmatism [Unknown]
  - Lacrimation increased [Unknown]
  - Ileus [Unknown]
  - Abdominal pain [Unknown]
  - Constipation [Unknown]
  - Metastases to lymph nodes [Unknown]
  - Metastases to gastrointestinal tract [Unknown]
  - Seborrhoeic keratosis [Unknown]
  - Pigmentation disorder [Unknown]
  - Aortic calcification [Unknown]
  - Aortic arteriosclerosis [Unknown]
